FAERS Safety Report 4880044-6 (Version None)
Quarter: 2005Q4

REPORT INFORMATION
  Report Type: 
  Country: None (occurrence: None)
  Receive Date: 20051223
  Receipt Date: 20050906
  Transmission Date: 20060501
  Serious: Yes (Death)
  Sender: FDA-Public Use
  Company Number: 05P-163-0307428-00

PATIENT
  Age: 59 Year
  Sex: Female
  Weight: 51.7101 kg

DRUGS (11)
  1. HUMIRA [Suspect]
     Indication: RHEUMATOID ARTHRITIS
     Dosage: 40 MG, 1 IN 2 WK, SUBCUTANEOUS ; SUBCUTANEOUS
     Route: 058
     Dates: start: 20030201, end: 20040201
  2. HUMIRA [Suspect]
     Indication: RHEUMATOID ARTHRITIS
     Dosage: 40 MG, 1 IN 2 WK, SUBCUTANEOUS ; SUBCUTANEOUS
     Route: 058
     Dates: start: 20050516
  3. CETIRIZINE HYDROCHLORIDE [Concomitant]
  4. CENTRA VITAMIN [Concomitant]
  5. ZOLPIDEM TARTRATE [Concomitant]
  6. VICODIN [Concomitant]
  7. ESOMEPRAZOLE [Concomitant]
  8. LOSARTAN POTASSIUM [Concomitant]
  9. ZOCOR [Concomitant]
  10. HYDROCHLOROTHIAZIDE [Concomitant]
  11. PREDNISONE [Concomitant]

REACTIONS (1)
  - WOUND INFECTION [None]
